FAERS Safety Report 7991561-4 (Version None)
Quarter: 2011Q4

REPORT INFORMATION
  Report Type: 
  Country: None (occurrence: None)
  Receive Date: 20111219
  Receipt Date: 20111215
  Transmission Date: 20120403
  Serious: Yes (Other)
  Sender: FDA-Public Use
  Company Number: US-PFIZER INC-2011305863

PATIENT
  Sex: Female

DRUGS (1)
  1. XANAX [Suspect]
     Indication: ANXIETY
     Dosage: UNK

REACTIONS (7)
  - DISTURBANCE IN ATTENTION [None]
  - INSOMNIA [None]
  - SUICIDAL IDEATION [None]
  - RESTLESSNESS [None]
  - NERVOUSNESS [None]
  - DECREASED APPETITE [None]
  - MALAISE [None]
